FAERS Safety Report 4895484-9 (Version None)
Quarter: 2005Q4

REPORT INFORMATION
  Report Type: 
  Country: None (occurrence: None)
  Receive Date: 20051220
  Receipt Date: 20050608
  Transmission Date: 20060501
  Serious: Yes (Other)
  Sender: FDA-Public Use
  Company Number: US137972

PATIENT
  Age: 51 Year
  Sex: Female
  Weight: 71.7 kg

DRUGS (4)
  1. ENBREL [Suspect]
     Indication: RHEUMATOID ARTHRITIS
     Dosage: 50 MG, 1 IN 1 WEEKS, SC
     Route: 058
     Dates: start: 20030103, end: 20050401
  2. METHOTREXATE [Suspect]
     Dosage: 2.5 MG,
     Dates: start: 19960131, end: 20050401
  3. DICLOFENAC SODIUM [Concomitant]
  4. ESTRADIOL INJ [Concomitant]

REACTIONS (1)
  - SQUAMOUS CELL CARCINOMA [None]
